FAERS Safety Report 4649878-7 (Version None)
Quarter: 2005Q2

REPORT INFORMATION
  Report Type: 
  Country: None (occurrence: None)
  Receive Date: 20050428
  Receipt Date: 20050415
  Transmission Date: 20051028
  Serious: Yes (Disabling)
  Sender: FDA-Public Use
  Company Number: 2005019945

PATIENT
  Age: 72 Year
  Sex: Male

DRUGS (4)
  1. CABERGOLINE [Suspect]
     Indication: PARKINSON'S DISEASE
     Dosage: 0.5 MG (0.5 MG, DAILY), ORAL
     Route: 048
     Dates: start: 20030130, end: 20030212
  2. MADOPAR (BENSERAZIDE HYDROCHLORIDE, LEVODOPA) [Concomitant]
  3. DOMPERIDONE (DOMPERIDONE) [Concomitant]
  4. AMANTADINE HCL [Concomitant]

REACTIONS (5)
  - CONDITION AGGRAVATED [None]
  - DIZZINESS POSTURAL [None]
  - DYSTONIA [None]
  - PARKINSONISM [None]
  - SOMNOLENCE [None]
